FAERS Safety Report 9891243 (Version 1)
Quarter: 2014Q1

REPORT INFORMATION
  Report Type: Spontaneous
  Country: US (occurrence: None)
  Receive Date: 20140211
  Receipt Date: 20140211
  Transmission Date: 20141002
  Serious: Yes (Other)
  Sender: FDA-Public Use
  Company Number: None

PATIENT
  Age: 82 Year
  Sex: Male

DRUGS (1)
  1. DIANEALPD [Suspect]
     Indication: PERITONEAL DIALYSIS
     Dates: start: 20140209, end: 20140209

REACTIONS (2)
  - Device damage [None]
  - Thrombosis in device [None]
